FAERS Safety Report 24564482 (Version 1)
Quarter: 2024Q4

REPORT INFORMATION
  Report Type: Spontaneous
  Country: US (occurrence: US)
  Receive Date: 20241030
  Receipt Date: 20241030
  Transmission Date: 20250115
  Serious: No
  Sender: ASTELLAS
  Company Number: US-ASTELLAS-2024-AER-015452

PATIENT
  Age: 66 Year
  Sex: Female

DRUGS (2)
  1. AMBISOME [Suspect]
     Active Substance: AMPHOTERICIN B
     Indication: Leishmaniasis
     Dosage: FOR 5 CONSECUTIVE DAYS
     Route: 065
  2. AMBISOME [Suspect]
     Active Substance: AMPHOTERICIN B
     Dosage: TAKEN AMBISOME IN THE PAST AT STANDARD DOSING
     Route: 065

REACTIONS (1)
  - Off label use [Unknown]
